FAERS Safety Report 6635711-0 (Version None)
Quarter: 2010Q1

REPORT INFORMATION
  Report Type: 
  Country: None (occurrence: None)
  Receive Date: 20100315
  Receipt Date: 20100305
  Transmission Date: 20100710
  Serious: Yes (Other)
  Sender: FDA-Public Use
  Company Number: ZA-ABBOTT-10P-143-0629949-00

PATIENT
  Sex: Female
  Weight: 44 kg

DRUGS (1)
  1. HUMIRA [Suspect]
     Indication: COLITIS ULCERATIVE
     Route: 058
     Dates: start: 20090901, end: 20100131

REACTIONS (10)
  - ABSCESS [None]
  - ARTHROPOD BITE [None]
  - ASTHMA [None]
  - DYSPNOEA [None]
  - FURUNCLE [None]
  - HORDEOLUM [None]
  - INFECTED BITES [None]
  - STAPHYLOCOCCAL INFECTION [None]
  - VULVOVAGINAL CANDIDIASIS [None]
  - WHEEZING [None]
